FAERS Safety Report 17520355 (Version 1)
Quarter: 2020Q1

REPORT INFORMATION
  Report Type: Report from Study
  Country: PH (occurrence: PH)
  Receive Date: 20200310
  Receipt Date: 20200310
  Transmission Date: 20200409
  Serious: Yes (Death, Other)
  Sender: FDA-Public Use
  Company Number: NVSC2020PH066978

PATIENT
  Age: 59 Year
  Sex: Female

DRUGS (2)
  1. TASIGNA [Suspect]
     Active Substance: NILOTINIB
     Indication: PRODUCT USED FOR UNKNOWN INDICATION
     Dosage: 2 DF, BID
     Route: 065
  2. GLIVEC [Suspect]
     Active Substance: IMATINIB MESYLATE
     Indication: PRODUCT USED FOR UNKNOWN INDICATION
     Dosage: 150MG 2 CAPSULES 2X A DAY
     Route: 065

REACTIONS (3)
  - Death [Fatal]
  - Philadelphia chromosome positive [Unknown]
  - Drug resistance [Unknown]

NARRATIVE: CASE EVENT DATE: 20200110
